FAERS Safety Report 6193966-3 (Version None)
Quarter: 2009Q2

REPORT INFORMATION
  Report Type: 
  Country: None (occurrence: None)
  Receive Date: 20090518
  Receipt Date: 20090508
  Transmission Date: 20091009
  Serious: Yes (Other)
  Sender: FDA-Public Use
  Company Number: PHHY2009JP17457

PATIENT
  Age: 60 Year
  Sex: Female

DRUGS (2)
  1. NEORAL [Suspect]
     Indication: URTICARIA
     Dosage: UNK
     Route: 048
     Dates: start: 20090401, end: 20090401
  2. NEORAL [Suspect]
     Dosage: ALTERNATE DAYS
     Route: 048
     Dates: start: 20090401

REACTIONS (1)
  - GINGIVAL ULCERATION [None]
